FAERS Safety Report 9867166 (Version 1)
Quarter: 2014Q1

REPORT INFORMATION
  Report Type: Spontaneous
  Country: IT (occurrence: IT)
  Receive Date: 20140204
  Receipt Date: 20140204
  Transmission Date: 20141002
  Serious: Yes (Other)
  Sender: FDA-Public Use
  Company Number: PHHY2014IT009342

PATIENT
  Age: 42 Year
  Sex: Female

DRUGS (4)
  1. CICLOSPORIN [Suspect]
     Indication: IMMUNOSUPPRESSION
  2. AZATHIOPRINE [Suspect]
     Indication: IMMUNOSUPPRESSION
  3. PREDNISONE [Suspect]
     Indication: IMMUNOSUPPRESSION
  4. TACROLIMUS [Suspect]
     Indication: IMMUNOSUPPRESSION

REACTIONS (9)
  - Posterior reversible encephalopathy syndrome [Recovering/Resolving]
  - Grand mal convulsion [Recovering/Resolving]
  - Somnolence [Recovering/Resolving]
  - Loss of consciousness [Recovering/Resolving]
  - Pupils unequal [Recovering/Resolving]
  - Cranial nerve palsies multiple [Recovering/Resolving]
  - Vasogenic cerebral oedema [Recovering/Resolving]
  - Central nervous system lesion [Recovering/Resolving]
  - Intracranial pressure increased [Recovering/Resolving]
